FAERS Safety Report 16795389 (Version 1)
Quarter: 2019Q3

REPORT INFORMATION
  Report Type: Spontaneous
  Country: NL (occurrence: NL)
  Receive Date: 20190911
  Receipt Date: 20190911
  Transmission Date: 20191005
  Serious: Yes (Hospitalization, Other)
  Sender: FDA-Public Use
  Company Number: NL-ROCHE-576569

PATIENT
  Sex: Female
  Weight: 3.78 kg

DRUGS (4)
  1. MABTHERA [Suspect]
     Active Substance: RITUXIMAB
     Indication: PRODUCT USED FOR UNKNOWN INDICATION
     Dosage: 375 MG/M2, X4W
     Route: 064
  2. PROSTAGLANDINS [Concomitant]
     Active Substance: UNSPECIFIED INGREDIENT
     Indication: INDUCED LABOUR
     Route: 064
  3. PETHIDINE [Suspect]
     Active Substance: MEPERIDINE
     Indication: PAIN
     Route: 064
  4. PROMETHAZINE [Concomitant]
     Active Substance: PROMETHAZINE HYDROCHLORIDE
     Indication: PAIN
     Route: 064

REACTIONS (5)
  - Off label use [Unknown]
  - B-lymphocyte count decreased [Recovered/Resolved]
  - Intentional product use issue [Unknown]
  - Foetal distress syndrome [Recovered/Resolved]
  - Foetal exposure during pregnancy [Unknown]
